FAERS Safety Report 23439832 (Version 1)
Quarter: 2024Q1

REPORT INFORMATION
  Report Type: Spontaneous
  Country: GB (occurrence: RU)
  Receive Date: 20240124
  Receipt Date: 20240124
  Transmission Date: 20240409
  Serious: Yes (Death, Other)
  Sender: FDA-Public Use
  Company Number: RU-ACRAF SpA-2024-033255

PATIENT

DRUGS (1)
  1. LATUDA [Suspect]
     Active Substance: LURASIDONE HYDROCHLORIDE
     Indication: Schizophrenia
     Dosage: 160 MG
     Route: 048
     Dates: start: 202301

REACTIONS (2)
  - Completed suicide [Fatal]
  - Off label use [Fatal]
